FAERS Safety Report 5892317-9 (Version None)
Quarter: 2008Q3

REPORT INFORMATION
  Report Type: 
  Country: None (occurrence: None)
  Receive Date: 20080922
  Receipt Date: 20080912
  Transmission Date: 20090109
  Serious: Yes (Hospitalization, Other)
  Sender: FDA-Public Use
  Company Number: AU-JNJCH-2008024095

PATIENT
  Age: 4 Year
  Sex: Female

DRUGS (1)
  1. CETIRIZINE HYDROCHLORIDE [Suspect]
     Dosage: TEXT:4 DF
     Route: 048
     Dates: start: 20080910, end: 20080910

REACTIONS (5)
  - DIARRHOEA [None]
  - DRY MOUTH [None]
  - HEADACHE [None]
  - OVERDOSE [None]
  - SOMNOLENCE [None]
